FAERS Safety Report 9245349 (Version 1)
Quarter: 2013Q1

REPORT INFORMATION
  Report Type: Spontaneous
  Country: US (occurrence: None)
  Receive Date: 20121130
  Receipt Date: 20121130
  Transmission Date: 20140127
  Serious: Yes (Hospitalization)
  Sender: FDA-Public Use
  Company Number: 355594

PATIENT
  Age: 49 Year
  Sex: Male
  Weight: 64.86 kg

DRUGS (2)
  1. NOVOLOG (INSULIN ASPART) SOLUTION FOR INJECTION, 100U/ML [Suspect]
     Indication: TYPE 2 DIABETES MELLITUS
     Dosage: 15 UNITS TWICE DAILY, SUBCUTANEOUS
     Route: 058
     Dates: start: 201111, end: 20120318
  2. LANTUS (INSULIN GLARGINE) [Suspect]
     Indication: TYPE 2 DIABETES MELLITUS
     Dosage: 35 UNITS TWICE DAILY, SUBCUTANEOUS
     Route: 058

REACTIONS (3)
  - Blood glucose decreased [None]
  - Blood glucose fluctuation [None]
  - Injection site reaction [None]
